FAERS Safety Report 12848084 (Version 1)
Quarter: 2016Q4

REPORT INFORMATION
  Report Type: Spontaneous
  Country: US (occurrence: US)
  Receive Date: 20161014
  Receipt Date: 20161014
  Transmission Date: 20170207
  Serious: No
  Sender: FDA-Public Use
  Company Number: US-JNJFOC-20160816504

PATIENT
  Age: 8 Month
  Sex: Male
  Weight: 11.34 kg

DRUGS (2)
  1. MOTRIN [Suspect]
     Active Substance: IBUPROFEN
     Route: 048
  2. MOTRIN [Suspect]
     Active Substance: IBUPROFEN
     Indication: TEETHING
     Route: 048
     Dates: start: 20160805

REACTIONS (1)
  - Irritability [Recovered/Resolved]

NARRATIVE: CASE EVENT DATE: 20160805
